FAERS Safety Report 6191852-6 (Version None)
Quarter: 2009Q2

REPORT INFORMATION
  Report Type: 
  Country: None (occurrence: None)
  Receive Date: 20090515
  Receipt Date: 20090506
  Transmission Date: 20091009
  Serious: Yes (Death)
  Sender: FDA-Public Use
  Company Number: DE-CELGENEUS-062-21880-09020458

PATIENT
  Sex: Female
  Weight: 82 kg

DRUGS (10)
  1. REVLIMID [Suspect]
     Indication: PLASMACYTOMA
     Route: 048
     Dates: start: 20080814
  2. REVLIMID [Suspect]
     Route: 048
     Dates: start: 20080908, end: 20081209
  3. REVLIMID [Suspect]
     Dates: start: 20081210, end: 20081229
  4. PREDNISONE [Concomitant]
     Indication: PLASMACYTOMA
     Route: 065
     Dates: start: 20080814, end: 20081228
  5. PREDNISONE [Concomitant]
     Route: 065
     Dates: start: 20081229
  6. FENTANYL-100 [Concomitant]
     Indication: DRUG USE FOR UNKNOWN INDICATION
     Route: 062
     Dates: start: 20080923
  7. VITAMIN B-12 [Concomitant]
     Indication: DRUG USE FOR UNKNOWN INDICATION
     Route: 058
     Dates: start: 20081215
  8. ANTIBIOTICS [Concomitant]
     Indication: PNEUMONIA
     Route: 065
     Dates: start: 20081222
  9. MORPHINE [Concomitant]
     Indication: PAIN
     Route: 065
     Dates: start: 20080109
  10. FOLIC ACID [Concomitant]
     Indication: DRUG USE FOR UNKNOWN INDICATION
     Route: 048
     Dates: start: 20081031

REACTIONS (1)
  - DISEASE PROGRESSION [None]
